FAERS Safety Report 25690044 (Version 1)
Quarter: 2025Q3

REPORT INFORMATION
  Report Type: Spontaneous
  Country: EU (occurrence: EU)
  Receive Date: 20250818
  Receipt Date: 20250818
  Transmission Date: 20251020
  Serious: Yes (Death, Other)
  Sender: STRIDES
  Company Number: EU-STRIDES ARCOLAB LIMITED-2025SP010497

PATIENT

DRUGS (1)
  1. METHOTREXATE [Suspect]
     Active Substance: METHOTREXATE
     Indication: Pemphigoid
     Route: 065

REACTIONS (5)
  - Thrombocytopenia [Fatal]
  - Neutropenia [Fatal]
  - Diarrhoea [Fatal]
  - Skin wound [Fatal]
  - Off label use [Unknown]
